FAERS Safety Report 7931918-0 (Version None)
Quarter: 2011Q4

REPORT INFORMATION
  Report Type: 
  Country: None (occurrence: None)
  Receive Date: 20111121
  Receipt Date: 20111111
  Transmission Date: 20120403
  Serious: Yes (Hospitalization)
  Sender: FDA-Public Use
  Company Number: US-BAYER-2011-040474

PATIENT
  Age: 48 Year
  Sex: Female
  Weight: 88.435 kg

DRUGS (8)
  1. YAZ [Suspect]
     Indication: DYSFUNCTIONAL UTERINE BLEEDING
     Dosage: UNK
     Route: 048
     Dates: start: 20080229, end: 20080328
  2. IBUPROFEN [Concomitant]
     Dosage: 600 MG, UNK
     Route: 048
  3. GLUCOSAMINE [Concomitant]
     Dosage: 500 MG, BID
     Route: 048
  4. FISH OIL [Concomitant]
  5. LEVOTHYROXINE SODIUM [Concomitant]
     Dosage: UNK
     Route: 048
     Dates: start: 20050101
  6. CALCIUM +VIT D [Concomitant]
     Dosage: Q600 MG, QD
     Route: 048
  7. MULTI-VITAMIN [Concomitant]
     Route: 048
  8. SKELAXIN [Concomitant]
     Route: 048

REACTIONS (5)
  - INJURY [None]
  - PAIN [None]
  - PULMONARY EMBOLISM [None]
  - DEPRESSION [None]
  - THROMBOSIS [None]
